FAERS Safety Report 25962822 (Version 1)
Quarter: 2025Q4

REPORT INFORMATION
  Report Type: Spontaneous
  Country: NZ (occurrence: NZ)
  Receive Date: 20251027
  Receipt Date: 20251027
  Transmission Date: 20260118
  Serious: Yes (Other)
  Sender: SANDOZ
  Company Number: NZ-002147023-NVSC2025NZ164247

PATIENT
  Age: 35 Year
  Sex: Female

DRUGS (18)
  1. AZITHROMYCIN [Suspect]
     Active Substance: AZITHROMYCIN
     Indication: Mycobacterium chelonae infection
     Dosage: UNK
     Route: 065
  2. AMIKACIN [Suspect]
     Active Substance: AMIKACIN
     Indication: Keratitis
     Dosage: RECEIVED 0.1ML OF 2.5 MG/ML
     Route: 050
  3. AMIKACIN [Suspect]
     Active Substance: AMIKACIN
     Dosage: UNK (INJECTION)
     Route: 065
  4. AMIKACIN [Suspect]
     Active Substance: AMIKACIN
     Indication: Mycobacterium chelonae infection
     Dosage: UNK, (TOPICAL)
     Route: 050
  5. CIPROFLOXACIN [Suspect]
     Active Substance: CIPROFLOXACIN
     Indication: Symptomatic treatment
     Dosage: 0.3% EVERY HOUR WITH A TAPER IN  FREQUENCY AS THE EYE IMPROVED (TOPICAL)
     Route: 050
  6. LINEZOLID [Suspect]
     Active Substance: LINEZOLID
     Indication: Mycobacterium chelonae infection
     Route: 065
  7. LINEZOLID [Suspect]
     Active Substance: LINEZOLID
     Indication: Keratitis
  8. POVIDONE-IODINE [Suspect]
     Active Substance: POVIDONE-IODINE
     Indication: Mycobacterium chelonae infection
     Dosage: RECEIVED FOR 5 MINS
     Route: 065
  9. POVIDONE-IODINE [Suspect]
     Active Substance: POVIDONE-IODINE
     Indication: Keratitis
  10. TOBRAMYCIN [Suspect]
     Active Substance: TOBRAMYCIN
     Dosage: (1.36% EVERY HOUR) (TOPICAL)
     Route: 050
  11. TOBRAMYCIN [Suspect]
     Active Substance: TOBRAMYCIN
     Indication: Symptomatic treatment
     Dosage: (1.36% FOUR TIMES PER DAY) (TOPICAL)
     Route: 050
  12. TOBRAMYCIN [Suspect]
     Active Substance: TOBRAMYCIN
     Indication: Mycobacterium chelonae infection
     Dosage: 0.3% EVERY HOUR (TOPICAL)
     Route: 050
  13. TOBRAMYCIN [Suspect]
     Active Substance: TOBRAMYCIN
     Indication: Keratitis
  14. CEFUROXIME [Concomitant]
     Active Substance: CEFUROXIME
     Indication: Mycobacterium chelonae infection
     Dosage: UNK
     Route: 065
  15. CEFUROXIME [Concomitant]
     Active Substance: CEFUROXIME
     Indication: Keratitis
  16. CLARITHROMYCIN [Concomitant]
     Active Substance: CLARITHROMYCIN
     Indication: Mycobacterium chelonae infection
     Dosage: VERY SLOW TAPER IN FREQUENCY OVER 3  WEEKS
     Route: 065
  17. NATAMYCIN [Concomitant]
     Active Substance: NATAMYCIN
     Indication: Fungal infection
     Dosage: UNK
     Route: 065
  18. PREDNISONE [Concomitant]
     Active Substance: PREDNISONE
     Indication: Inflammation
     Dosage: 60 MG, QD
     Route: 048

REACTIONS (8)
  - Corneal opacity [Recovering/Resolving]
  - Corneal epithelium defect [Recovering/Resolving]
  - Ocular toxicity [Recovering/Resolving]
  - Mycobacterium chelonae infection [Unknown]
  - Corneal infiltrates [Unknown]
  - Conjunctivitis [Recovering/Resolving]
  - Eye pain [Recovering/Resolving]
  - Drug ineffective [Unknown]
